FAERS Safety Report 23852418 (Version 2)
Quarter: 2024Q2

REPORT INFORMATION
  Report Type: Report from Study
  Country: US (occurrence: US)
  Receive Date: 20240514
  Receipt Date: 20240521
  Transmission Date: 20240715
  Serious: Yes (Other)
  Sender: FDA-Public Use
  Company Number: US-BAYER-2024A069540

PATIENT
  Age: 57 Year
  Sex: Female
  Weight: 83.9 kg

DRUGS (14)
  1. ADEMPAS [Suspect]
     Active Substance: RIOCIGUAT
     Indication: Pulmonary arterial hypertension
     Dosage: UNK
     Dates: start: 20230831
  2. ADEMPAS [Suspect]
     Active Substance: RIOCIGUAT
     Indication: Pulmonary arterial hypertension
     Dosage: 2.5 MG, TID
     Route: 048
  3. ZOLOFT [Concomitant]
     Active Substance: SERTRALINE HYDROCHLORIDE
  4. ATORVASTATIN CALCIUM [Concomitant]
     Active Substance: ATORVASTATIN CALCIUM
  5. VITAMIN B12 [Concomitant]
     Active Substance: CYANOCOBALAMIN
  6. MOUNJARO [Concomitant]
     Active Substance: TIRZEPATIDE
  7. XANAX [Concomitant]
     Active Substance: ALPRAZOLAM
  8. OXYGEN [Concomitant]
     Active Substance: OXYGEN
  9. BUMETANIDE [Concomitant]
     Active Substance: BUMETANIDE
  10. METFORMIN HYDROCHLORIDE [Concomitant]
     Active Substance: METFORMIN HYDROCHLORIDE
  11. VITAMIN D3 [Concomitant]
     Active Substance: CHOLECALCIFEROL
  12. REMODULIN [Concomitant]
     Active Substance: TREPROSTINIL
  13. AMBRISENTAN [Concomitant]
     Active Substance: AMBRISENTAN
  14. POTASSIUM CHLORIDE [Concomitant]
     Active Substance: POTASSIUM CHLORIDE

REACTIONS (4)
  - Blood pressure systolic decreased [None]
  - Heart rate increased [None]
  - Chest pain [None]
  - Hypotension [None]

NARRATIVE: CASE EVENT DATE: 20240514
